FAERS Safety Report 12974403 (Version 2)
Quarter: 2019Q3

REPORT INFORMATION
  Report Type: Spontaneous
  Country: IT (occurrence: IT)
  Receive Date: 20161125
  Receipt Date: 20190722
  Transmission Date: 20191004
  Serious: Yes (Other)
  Sender: FDA-Public Use
  Company Number: IT-BRISTOL-MYERS SQUIBB COMPANY-BMS-2016-095273

PATIENT
  Age: 63 Year
  Sex: Male

DRUGS (2)
  1. TRIAMCINOLONE ACETONIDE. [Suspect]
     Active Substance: TRIAMCINOLONE ACETONIDE
     Indication: BLINDNESS
     Dosage: 80 MG, UNK
     Route: 056
  2. PREDNISOLONE. [Suspect]
     Active Substance: PREDNISOLONE
     Indication: BLINDNESS
     Dosage: 80 MG, UNK
     Route: 048

REACTIONS (3)
  - Product use issue [Unknown]
  - Choroidal effusion [Unknown]
  - Sclerectomy [Unknown]
